FAERS Safety Report 7374798-7 (Version None)
Quarter: 2011Q1

REPORT INFORMATION
  Report Type: 
  Country: None (occurrence: None)
  Receive Date: 20110325
  Receipt Date: 20101119
  Transmission Date: 20110831
  Serious: No
  Sender: FDA-Public Use
  Company Number: US-MYLANLABS-2010S1021532

PATIENT
  Age: 48 Year
  Sex: Female

DRUGS (12)
  1. DOXYCYCLINE [Concomitant]
  2. ESTRADIOL TRANSDERMAL [Concomitant]
     Route: 064
  3. FENTANYL-100 [Suspect]
     Indication: FIBROMYALGIA
     Dosage: Q 72 HOURS
     Route: 062
     Dates: start: 19960101
  4. SERTRALINE HYDROCHLORIDE [Concomitant]
  5. FOLIC ACID [Concomitant]
  6. AMITRIPTYLINE [Concomitant]
  7. ALLEGRA D 24 HOUR [Concomitant]
  8. BACLOFEN [Concomitant]
  9. NASONEX [Concomitant]
  10. LORTAB [Concomitant]
  11. ZOLOFT [Concomitant]
  12. XANAX [Concomitant]

REACTIONS (1)
  - DRUG SCREEN FALSE POSITIVE [None]
